FAERS Safety Report 6448406-3 (Version None)
Quarter: 2009Q4

REPORT INFORMATION
  Report Type: 
  Country: None (occurrence: None)
  Receive Date: 20091120
  Receipt Date: 20091118
  Transmission Date: 20100525
  Serious: Yes (Death, Hospitalization, Other)
  Sender: FDA-Public Use
  Company Number: PHEH2009US15544

PATIENT
  Sex: Male
  Weight: 120.18 kg

DRUGS (9)
  1. EXJADE [Suspect]
     Indication: IRON OVERLOAD
     Dosage: 1625 UNK, QD
     Route: 048
     Dates: start: 20080618, end: 20090309
  2. ALLOPURINOL [Concomitant]
     Dosage: 300 MG, QD
     Route: 048
  3. NORVASC [Concomitant]
     Dosage: 5 MG, QD
     Route: 048
  4. CARDURA CR [Concomitant]
     Dosage: 2 MG, QHS
     Route: 048
  5. LASIX [Concomitant]
     Dosage: 20 MG, QD
     Route: 048
  6. MICRONASE [Concomitant]
     Dosage: 5 MG, QD
     Route: 048
  7. LISINOPRIL [Concomitant]
     Dosage: 20 MG, QD
     Route: 048
  8. PAXIL [Concomitant]
     Dosage: 30 MG, QD
     Route: 048
  9. SPIRIVA [Concomitant]

REACTIONS (9)
  - ACUTE MYOCARDIAL INFARCTION [None]
  - BACTERAEMIA [None]
  - ENDOTRACHEAL INTUBATION [None]
  - EXTUBATION [None]
  - MULTI-ORGAN FAILURE [None]
  - RENAL FAILURE ACUTE [None]
  - RESPIRATORY FAILURE [None]
  - SEPTIC SHOCK [None]
  - UNRESPONSIVE TO STIMULI [None]
